FAERS Safety Report 17308028 (Version 1)
Quarter: 2020Q1

REPORT INFORMATION
  Report Type: Spontaneous
  Country: US (occurrence: US)
  Receive Date: 20200123
  Receipt Date: 20200123
  Transmission Date: 20200409
  Serious: No
  Sender: FDA-Public Use
  Company Number: US-GLAXOSMITHKLINE-US2020006568

PATIENT
  Sex: Male

DRUGS (1)
  1. ARNUITY ELLIPTA [Suspect]
     Active Substance: FLUTICASONE FUROATE
     Indication: BRONCHITIS
     Dosage: UNK
     Route: 055
     Dates: start: 20200106

REACTIONS (6)
  - Off label use [Unknown]
  - Overdose [Unknown]
  - Drug ineffective for unapproved indication [Unknown]
  - Wrong technique in device usage process [Unknown]
  - Product use in unapproved indication [Unknown]
  - Product confusion [Unknown]

NARRATIVE: CASE EVENT DATE: 20200106
